FAERS Safety Report 6579782-9 (Version None)
Quarter: 2010Q1

REPORT INFORMATION
  Report Type: 
  Country: None (occurrence: None)
  Receive Date: 20100212
  Receipt Date: 20100204
  Transmission Date: 20100710
  Serious: Yes (Death)
  Sender: FDA-Public Use
  Company Number: SE-ROCHE-682529

PATIENT
  Age: 52 Year
  Sex: Male

DRUGS (4)
  1. AVASTIN [Suspect]
     Dosage: REPORTED AS AVASTIN 25MG/ML.
     Route: 042
     Dates: start: 20090224, end: 20100112
  2. FLUOROURACIL [Concomitant]
  3. CAMPRAL [Concomitant]
     Dosage: REPORTED AS CAMPRAL GASTRO-RESISTANT.
  4. CALCIUMFOLINAT [Concomitant]
     Dosage: REPORTED AS KALCIUMFOLINAT PERIVITA

REACTIONS (1)
  - LARGE INTESTINAL ULCER HAEMORRHAGE [None]
